FAERS Safety Report 20587077 (Version 3)
Quarter: 2022Q2

REPORT INFORMATION
  Report Type: Spontaneous
  Country: CZ (occurrence: CZ)
  Receive Date: 20220314
  Receipt Date: 20220413
  Transmission Date: 20220721
  Serious: Yes (Death)
  Sender: FDA-Public Use
  Company Number: CZ-NOVOPROD-897701

PATIENT
  Age: 69 Year
  Sex: Female
  Weight: 103 kg

DRUGS (19)
  1. RYBELSUS [Suspect]
     Active Substance: SEMAGLUTIDE
     Indication: Product used for unknown indication
     Dosage: 3 MG, QD
     Route: 065
     Dates: start: 20211110
  2. METFORMIN HYDROCHLORIDE [Concomitant]
     Active Substance: METFORMIN HYDROCHLORIDE
     Indication: Product used for unknown indication
     Dosage: 1000 1-1/2-1,
     Route: 065
     Dates: start: 20211109
  3. METFORMIN HYDROCHLORIDE [Concomitant]
     Active Substance: METFORMIN HYDROCHLORIDE
     Dosage: 1000 1-1/2-1
     Route: 065
     Dates: start: 20211110
  4. METFORMIN HYDROCHLORIDE [Concomitant]
     Active Substance: METFORMIN HYDROCHLORIDE
     Dosage: 1000 1-1/2-1
     Route: 065
     Dates: start: 20210326
  5. CORVAPRO [Concomitant]
     Dosage: 20 0-0-1,
     Route: 065
     Dates: start: 20211110
  6. CORVAPRO [Concomitant]
     Indication: Product used for unknown indication
     Dosage: 10 1-0-0,
     Route: 065
     Dates: start: 20211109
  7. AMLODIPINE BESYLATE\PERINDOPRIL ERBUMINE [Concomitant]
     Active Substance: AMLODIPINE BESYLATE\PERINDOPRIL ERBUMINE
     Dosage: 8/10 1-0-0
     Route: 065
     Dates: start: 20211110
  8. AMLODIPINE BESYLATE\PERINDOPRIL ERBUMINE [Concomitant]
     Active Substance: AMLODIPINE BESYLATE\PERINDOPRIL ERBUMINE
     Indication: Product used for unknown indication
     Dosage: 8/10 1-0-0
     Route: 065
     Dates: start: 20211109
  9. FUROSEMIDE [Concomitant]
     Active Substance: FUROSEMIDE
     Indication: Product used for unknown indication
     Dosage: 1-0-0
     Dates: start: 20211110
  10. STACYL [Concomitant]
     Dosage: 100 1-0-0,
     Route: 065
     Dates: start: 20211109
  11. STACYL [Concomitant]
     Indication: Product used for unknown indication
     Dosage: 100 1-0-0,
     Route: 065
     Dates: start: 20211110
  12. DIOSMIN\HESPERIDIN [Concomitant]
     Active Substance: DIOSMIN\HESPERIDIN
     Dosage: 1X2 TABLETS
     Route: 065
     Dates: start: 20211109
  13. DIOSMIN\HESPERIDIN [Concomitant]
     Active Substance: DIOSMIN\HESPERIDIN
     Indication: Product used for unknown indication
     Dosage: 1X2 TABLETS
     Route: 065
     Dates: start: 20211110
  14. RYBELSUS [Suspect]
     Active Substance: SEMAGLUTIDE
     Dosage: 14 MG, QD
     Route: 065
     Dates: end: 2021
  15. RYBELSUS [Suspect]
     Active Substance: SEMAGLUTIDE
     Indication: Product used for unknown indication
     Dosage: 7 MG, QD
     Route: 065
     Dates: start: 20211208
  16. BISOPROLOL FUMARATE [Concomitant]
     Active Substance: BISOPROLOL FUMARATE
     Indication: Product used for unknown indication
     Dosage: 10 1-0-0
     Route: 065
     Dates: start: 20211109
  17. BISOPROLOL FUMARATE [Concomitant]
     Active Substance: BISOPROLOL FUMARATE
     Dosage: 10 1-0-0
     Route: 065
     Dates: start: 20211110
  18. FUROSEMIDE SODIUM [Concomitant]
     Active Substance: FUROSEMIDE SODIUM
     Dosage: UNK,1-0-0
     Route: 065
     Dates: start: 20211109
  19. FUROSEMIDE SODIUM [Concomitant]
     Active Substance: FUROSEMIDE SODIUM
     Dosage: UNK,1-0-0
     Route: 065
     Dates: start: 20211110

REACTIONS (1)
  - Sudden death [Fatal]

NARRATIVE: CASE EVENT DATE: 20211214
